FAERS Safety Report 5051773-9 (Version None)
Quarter: 2006Q3

REPORT INFORMATION
  Report Type: 
  Country: None (occurrence: None)
  Receive Date: 20060713
  Receipt Date: 20060713
  Transmission Date: 20061208
  Serious: Yes (Other)
  Sender: FDA-Public Use
  Company Number: None

PATIENT
  Age: 93 Year
  Sex: Male
  Weight: 72.2 kg

DRUGS (1)
  1. PLAVIX [Suspect]

REACTIONS (1)
  - HAEMORRHAGE [None]
